FAERS Safety Report 6656282-9 (Version None)
Quarter: 2010Q1

REPORT INFORMATION
  Report Type: 
  Country: None (occurrence: None)
  Receive Date: 20100329
  Receipt Date: 20100317
  Transmission Date: 20100710
  Serious: Yes (Other)
  Sender: FDA-Public Use
  Company Number: US-BAYER-201014526NA

PATIENT
  Age: 75 Year
  Sex: Male

DRUGS (1)
  1. UNKNOWN PDE 5 INHIBITOR [Suspect]
     Indication: ERECTILE DYSFUNCTION
     Route: 048

REACTIONS (4)
  - METAMORPHOPSIA [None]
  - OPTIC NEUROPATHY [None]
  - VISUAL ACUITY REDUCED [None]
  - VISUAL IMPAIRMENT [None]
